FAERS Safety Report 17217620 (Version 1)
Quarter: 2019Q4

REPORT INFORMATION
  Report Type: Spontaneous
  Country: SE (occurrence: SE)
  Receive Date: 20191231
  Receipt Date: 20191231
  Transmission Date: 20200122
  Serious: Yes (Hospitalization)
  Sender: FDA-Public Use
  Company Number: SE-TEVA-2019-SE-1159800

PATIENT
  Age: 21 Year
  Sex: Female

DRUGS (7)
  1. OMEPRAZOLE. [Suspect]
     Active Substance: OMEPRAZOLE
     Dosage: AMBULANCE FOUND MAPS AT HOME, 140 MG OMEPRAZOLE
     Route: 048
     Dates: start: 201904, end: 201904
  2. PROPAVAN [Suspect]
     Active Substance: PROPIOMAZINE
     Dosage: AMBULANCE FOUND MAPS AT HOME, 1250 MG PROPAVAN
     Route: 048
     Dates: start: 201904, end: 201904
  3. OXYCODONE [Suspect]
     Active Substance: OXYCODONE
     Dosage: AMBULANCE FOUND MAPS AT HOME 15 MG OXYCODONE
     Route: 048
     Dates: start: 201904, end: 201904
  4. IPREN [Suspect]
     Active Substance: IBUPROFEN
     Dosage: AMBULANCE FOUND MAPS AT HOME, 4 G IPREN
     Route: 048
     Dates: start: 201904, end: 201904
  5. ALVEDON [Suspect]
     Active Substance: ACETAMINOPHEN
     Dosage: AMBULANCE FOUND MAPS AT HOME, 5 G ALVEDON
     Route: 048
     Dates: start: 201904, end: 201904
  6. ATARAX [Suspect]
     Active Substance: HYDROXYZINE HYDROCHLORIDE
     Dosage: AMBULANCE FOUND MAPS AT HOME, 120 MG ATARAX
     Route: 048
     Dates: start: 201904, end: 201904
  7. ATENOLOL. [Suspect]
     Active Substance: ATENOLOL
     Dosage: AMBULANCE FOUND MAPS AT HOME, 100 MG ATENOLOL
     Route: 048
     Dates: start: 201904, end: 201904

REACTIONS (3)
  - Intentional overdose [Unknown]
  - Depressed level of consciousness [Unknown]
  - Intentional self-injury [Unknown]

NARRATIVE: CASE EVENT DATE: 201904
